FAERS Safety Report 4649656-9 (Version None)
Quarter: 2005Q2

REPORT INFORMATION
  Report Type: 
  Country: None (occurrence: None)
  Receive Date: 20050502
  Receipt Date: 20040812
  Transmission Date: 20051028
  Serious: Yes (Hospitalization)
  Sender: FDA-Public Use
  Company Number: US-BRISTOL-MYERS SQUIBB COMPANY-12670345

PATIENT
  Age: 61 Year
  Sex: Male
  Weight: 116 kg

DRUGS (4)
  1. IRBESARTAN [Suspect]
     Indication: HYPERTENSION
     Dosage: STOPPED 29-JUN-2004 RESTARTED 02-JUL-2004
     Dates: start: 20031017
  2. WARFARIN SODIUM [Suspect]
     Indication: PROPHYLAXIS
     Dates: start: 20031017, end: 20040628
  3. BLINDED: PLACEBO [Suspect]
     Indication: HYPERTENSION
     Dosage: STOPPED 29-JUN-2004 RESTARTED 02-JUL-2004
     Dates: start: 20031017
  4. ASPIRIN [Concomitant]

REACTIONS (2)
  - DIVERTICULITIS [None]
  - LOWER GASTROINTESTINAL HAEMORRHAGE [None]
